FAERS Safety Report 8358101-1 (Version None)
Quarter: 2012Q2

REPORT INFORMATION
  Report Type: 
  Country: None (occurrence: None)
  Receive Date: 20120514
  Receipt Date: 20120419
  Transmission Date: 20120825
  Serious: Yes (Other)
  Sender: FDA-Public Use
  Company Number: US-ROCHE-1011494

PATIENT
  Sex: Male

DRUGS (1)
  1. ZELBORAF [Suspect]
     Indication: PRODUCT USED FOR UNKNOWN INDICATION
     Dosage: UNKNOWN
     Route: 065

REACTIONS (13)
  - ACNE [None]
  - HYPOAESTHESIA [None]
  - MELANOCYTIC NAEVUS [None]
  - ARTHRALGIA [None]
  - SUNBURN [None]
  - MYALGIA [None]
  - HEADACHE [None]
  - HYPERKERATOSIS [None]
  - NEOPLASM [None]
  - ERYTHEMA [None]
  - VISION BLURRED [None]
  - DECREASED APPETITE [None]
  - WEIGHT DECREASED [None]
